FAERS Safety Report 20308365 (Version 3)
Quarter: 2022Q4

REPORT INFORMATION
  Report Type: Report from Study
  Country: CA (occurrence: CA)
  Receive Date: 20220107
  Receipt Date: 20221128
  Transmission Date: 20230112
  Serious: Yes (Life-Threatening, Other)
  Sender: FDA-Public Use
  Company Number: CA-JNJFOC-20220105744

PATIENT
  Age: 60 Year
  Sex: Female

DRUGS (2)
  1. REMICADE [Suspect]
     Active Substance: INFLIXIMAB
     Indication: Crohn^s disease
     Route: 042
  2. REMICADE [Suspect]
     Active Substance: INFLIXIMAB
     Dosage: ON 23-NOV-2022, PATIENT RECEIVED 105TH INFLIXIMAB INFUSION AT 500 MG AND PARTIAL HARVEY-BRADSHAW COM
     Route: 042

REACTIONS (8)
  - Adenocarcinoma pancreas [Unknown]
  - Splenectomy [Unknown]
  - Adrenalectomy [Unknown]
  - Oophorectomy [Unknown]
  - Lymphadenectomy [Unknown]
  - Soft tissue excision [Unknown]
  - Abdominal pain [Unknown]
  - Diarrhoea [Unknown]

NARRATIVE: CASE EVENT DATE: 20211222
